FAERS Safety Report 11145701 (Version 2)
Quarter: 2015Q3

REPORT INFORMATION
  Report Type: Spontaneous
  Country: FR (occurrence: FR)
  Receive Date: 20150528
  Receipt Date: 20150714
  Transmission Date: 20151125
  Serious: Yes (Hospitalization)
  Sender: FDA-Public Use
  Company Number: FR-HORIZON-BUP-0003-2015

PATIENT
  Age: 18 Year
  Sex: Female

DRUGS (10)
  1. ARGININE [Concomitant]
     Active Substance: ARGININE
     Route: 048
  2. SODIUM BENZOATE [Concomitant]
     Active Substance: SODIUM BENZOATE
  3. LEVOCARNIL [Concomitant]
     Active Substance: LEVOCARNITINE
     Route: 048
  4. AMMONAPS TABLET [Suspect]
     Active Substance: SODIUM PHENYLBUTYRATE
     Dosage: 1 MEASURING SPOON
     Route: 048
  5. OMACOR [Concomitant]
     Active Substance: OMEGA-3-ACID ETHYL ESTERS
     Route: 048
  6. POLYVITAMIN B [Concomitant]
  7. URBANYL [Suspect]
     Active Substance: CLOBAZAM
     Route: 048
  8. LIPANTYL [Concomitant]
     Route: 048
  9. LIQUIGEN [Concomitant]
     Active Substance: MEDIUM-CHAIN TRIGLYCERIDES
     Route: 048
  10. RENITEC [Concomitant]
     Active Substance: ENALAPRIL MALEATE
     Route: 048

REACTIONS (3)
  - Hepatocellular injury [None]
  - Hepatocellular injury [Recovered/Resolved]
  - Pancreatitis acute [Recovered/Resolved]

NARRATIVE: CASE EVENT DATE: 20150309
